FAERS Safety Report 15350946 (Version 2)
Quarter: 2018Q3

REPORT INFORMATION
  Report Type: Report from Study
  Country: None (occurrence: CA)
  Receive Date: 20180905
  Receipt Date: 20180914
  Transmission Date: 20181010
  Serious: No
  Sender: FDA-Public Use
  Company Number: CA-ABBVIE-18S-028-2473090-00

PATIENT
  Sex: Female
  Weight: 61.74 kg

DRUGS (4)
  1. SYNTHROID [Concomitant]
     Active Substance: LEVOTHYROXINE SODIUM
     Indication: PRODUCT USED FOR UNKNOWN INDICATION
  2. LUPRON DEPOT [Suspect]
     Active Substance: LEUPROLIDE ACETATE
     Indication: PREOPERATIVE CARE
     Route: 030
     Dates: start: 20180619, end: 20180819
  3. LUPRON DEPOT [Suspect]
     Active Substance: LEUPROLIDE ACETATE
     Indication: MENORRHAGIA
  4. LUPRON DEPOT [Suspect]
     Active Substance: LEUPROLIDE ACETATE
     Indication: UTERINE LEIOMYOMA

REACTIONS (1)
  - Off label use [Not Recovered/Not Resolved]
